FAERS Safety Report 20483876 (Version 6)
Quarter: 2022Q3

REPORT INFORMATION
  Report Type: Report from Study
  Country: US (occurrence: US)
  Receive Date: 20220217
  Receipt Date: 20220805
  Transmission Date: 20221026
  Serious: No
  Sender: FDA-Public Use
  Company Number: US-NOVARTISTESTPH-NVSC2022US036887

PATIENT
  Sex: Female

DRUGS (3)
  1. COSENTYX [Suspect]
     Active Substance: SECUKINUMAB
     Indication: Psoriasis
     Dosage: 300 MG, QW (Q WEEK FOR 5 WEEKS AND THEN Q 4 WEEKS)
     Route: 058
     Dates: start: 20220114
  2. COSENTYX [Suspect]
     Active Substance: SECUKINUMAB
     Dosage: UNK (LOADING DOSES)
     Route: 065
  3. COSENTYX [Suspect]
     Active Substance: SECUKINUMAB
     Dosage: 300 MG, QW
     Route: 058
     Dates: start: 202201

REACTIONS (4)
  - Injection site pain [Recovered/Resolved]
  - Product use issue [Unknown]
  - Psoriasis [Not Recovered/Not Resolved]
  - Drug ineffective [Unknown]
